FAERS Safety Report 9269005 (Version 2)
Quarter: 2013Q2

REPORT INFORMATION
  Report Type: Spontaneous
  Country: US (occurrence: US)
  Receive Date: 20130503
  Receipt Date: 20130620
  Transmission Date: 20140414
  Serious: Yes (Hospitalization)
  Sender: FDA-Public Use
  Company Number: US-BIOGENIDEC-2013BI038915

PATIENT
  Age: 51 Year
  Sex: Female

DRUGS (2)
  1. AVONEX [Suspect]
     Indication: MULTIPLE SCLEROSIS
     Route: 030
     Dates: start: 20010510
  2. AVONEX [Suspect]
     Indication: MULTIPLE SCLEROSIS
     Route: 030
     Dates: start: 2006

REACTIONS (5)
  - Dyspnoea [Recovered/Resolved]
  - Spinal fusion surgery [Recovered/Resolved]
  - Pain in extremity [Not Recovered/Not Resolved]
  - Injection site cyst [Recovered/Resolved]
  - Injection site erythema [Recovered/Resolved]
